FAERS Safety Report 13624249 (Version 3)
Quarter: 2017Q3

REPORT INFORMATION
  Report Type: Report from Study
  Country: US (occurrence: US)
  Receive Date: 20170608
  Receipt Date: 20170829
  Transmission Date: 20171127
  Serious: Yes (Other)
  Sender: FDA-Public Use
  Company Number: US-009507513-1706USA001642

PATIENT
  Sex: Male
  Weight: 103.1 kg

DRUGS (2)
  1. ISENTRESS [Suspect]
     Active Substance: RALTEGRAVIR POTASSIUM
     Indication: HIV INFECTION
     Dosage: 2 TABLETS ONCE A DAY
     Route: 048
     Dates: start: 1999
  2. TRUVADA [Concomitant]
     Active Substance: EMTRICITABINE\TENOFOVIR DISOPROXIL FUMARATE
     Indication: HIV INFECTION
     Dosage: 200-300 MG TABLET, 1 TABLET ONCE A DAY
     Route: 048

REACTIONS (7)
  - Weight increased [Unknown]
  - Flatulence [Unknown]
  - Blindness [Unknown]
  - Insomnia [Unknown]
  - Hereditary optic atrophy [Unknown]
  - Abdominal distension [Unknown]
  - Blood pressure increased [Recovering/Resolving]

NARRATIVE: CASE EVENT DATE: 1999
